FAERS Safety Report 10260891 (Version 1)
Quarter: 2014Q2

REPORT INFORMATION
  Report Type: Spontaneous
  Country: FR (occurrence: FR)
  Receive Date: 20140626
  Receipt Date: 20140626
  Transmission Date: 20141212
  Serious: Yes (Hospitalization)
  Sender: FDA-Public Use
  Company Number: PHHY2014FR077484

PATIENT
  Age: 62 Year
  Sex: Female

DRUGS (4)
  1. VOLTARENE [Suspect]
     Dosage: 75 MG, UNK
     Dates: start: 20140423, end: 20140423
  2. METFORMIN [Suspect]
     Dosage: UNK UKN, UNK
     Dates: start: 20140410, end: 20140430
  3. RAMIPRIL [Suspect]
     Dosage: UNK UKN, UNK
     Dates: start: 20140410, end: 20140426
  4. AMOXICILLIN [Suspect]
     Dosage: UNK UKN, UNK
     Dates: start: 20140424, end: 20140424

REACTIONS (2)
  - Acute generalised exanthematous pustulosis [Recovered/Resolved]
  - Face oedema [Recovered/Resolved]
